FAERS Safety Report 17283070 (Version 1)
Quarter: 2020Q1

REPORT INFORMATION
  Report Type: Spontaneous
  Country: US (occurrence: US)
  Receive Date: 20200117
  Receipt Date: 20200117
  Transmission Date: 20200409
  Serious: Yes (Death)
  Sender: FDA-Public Use
  Company Number: None

PATIENT
  Age: 87 Year
  Sex: Female

DRUGS (1)
  1. CEFEPIME [Suspect]
     Active Substance: CEFEPIME HYDROCHLORIDE
     Indication: OSTEOMYELITIS
     Route: 042
     Dates: start: 20191229, end: 20200103

REACTIONS (5)
  - Gastrointestinal haemorrhage [None]
  - Delirium [None]
  - Epilepsy [None]
  - Hypotension [None]
  - Septic shock [None]

NARRATIVE: CASE EVENT DATE: 20200103
